FAERS Safety Report 6426111-7 (Version None)
Quarter: 2009Q4

REPORT INFORMATION
  Report Type: 
  Country: None (occurrence: None)
  Receive Date: 20091104
  Receipt Date: 20091023
  Transmission Date: 20100525
  Serious: Yes (Hospitalization)
  Sender: FDA-Public Use
  Company Number: GB-JNJFOC-20091100684

PATIENT
  Age: 19 Year

DRUGS (6)
  1. REMICADE [Suspect]
     Indication: DRUG USE FOR UNKNOWN INDICATION
     Route: 042
  2. ADALIMUMAB [Concomitant]
  3. METHOTREXATE [Concomitant]
  4. FERROUS SULFATE TAB [Concomitant]
  5. ONDANSETRON [Concomitant]
  6. BUTRANS [Concomitant]

REACTIONS (2)
  - URINARY TRACT INFECTION [None]
  - VOMITING [None]
